FAERS Safety Report 20431746 (Version 2)
Quarter: 2022Q3

REPORT INFORMATION
  Report Type: Report from Study
  Country: FR (occurrence: FR)
  Receive Date: 20220204
  Receipt Date: 20220809
  Transmission Date: 20221027
  Serious: Yes (Hospitalization, Other)
  Sender: FDA-Public Use
  Company Number: FR-SERVIER-S22000976

PATIENT

DRUGS (10)
  1. PEGASPARGASE [Suspect]
     Active Substance: PEGASPARGASE
     Indication: Acute lymphocytic leukaemia
     Dosage: 652 IU, ON D4
     Route: 042
     Dates: start: 20200903, end: 20200903
  2. DEXAMETHASONE [Suspect]
     Active Substance: DEXAMETHASONE
     Indication: Acute lymphocytic leukaemia
     Dosage: 2.5 MG, D1 TO D15
     Route: 048
     Dates: start: 20200831
  3. VINCRISTINE [Suspect]
     Active Substance: VINCRISTINE
     Indication: Acute lymphocytic leukaemia
     Dosage: 0.8 MG, D1, D8
     Route: 042
     Dates: start: 20200831
  4. DOXORUBICIN [Suspect]
     Active Substance: DOXORUBICIN
     Indication: Acute lymphocytic leukaemia
     Dosage: 13.2 MG, D1, D8
     Route: 042
     Dates: start: 20200831
  5. METHOTREXATE [Suspect]
     Active Substance: METHOTREXATE
     Indication: Acute lymphocytic leukaemia
     Dosage: 10 MG, ON D4
     Route: 037
     Dates: start: 20200903
  6. PHLOROGLUCINOL [Concomitant]
     Active Substance: PHLOROGLUCINOL
     Indication: Abdominal pain
     Dosage: 100 MG
     Route: 042
     Dates: start: 20200913
  7. PIPERACILLIN AND TAZOBACTAM [Concomitant]
     Active Substance: PIPERACILLIN SODIUM\TAZOBACTAM SODIUM
     Indication: Febrile bone marrow aplasia
     Dosage: 3.9 G
     Route: 042
     Dates: start: 20200913, end: 20200917
  8. POLYETHYLENE GLYCOL 4000 [Concomitant]
     Active Substance: POLYETHYLENE GLYCOL 4000
     Indication: Constipation
     Dosage: UNK
     Route: 048
     Dates: start: 20200914
  9. VANCOMYCIN [Concomitant]
     Active Substance: VANCOMYCIN
     Indication: Febrile bone marrow aplasia
     Dosage: 480 MG
     Route: 042
     Dates: start: 20200915, end: 20200917
  10. ALBUMIN HUMAN [Concomitant]
     Active Substance: ALBUMIN HUMAN
     Indication: Hypoalbuminaemia
     Dosage: 15 G
     Route: 042
     Dates: start: 20200915, end: 20200919

REACTIONS (2)
  - Pseudomonal sepsis [Recovered/Resolved]
  - Hypertriglyceridaemia [Recovered/Resolved]

NARRATIVE: CASE EVENT DATE: 20200907
